FAERS Safety Report 8397456-9 (Version None)
Quarter: 2012Q2

REPORT INFORMATION
  Report Type: 
  Country: None (occurrence: None)
  Receive Date: 20120529
  Receipt Date: 20120529
  Transmission Date: 20120825
  Serious: Yes (Other)
  Sender: FDA-Public Use
  Company Number: None

PATIENT
  Age: 31 Year
  Sex: Female
  Weight: 61.2356 kg

DRUGS (1)
  1. VENLAFAXINE [Suspect]
     Indication: NECK PAIN
     Dosage: 1/2 PILL DAILY  PO
     Route: 048
     Dates: start: 20120523, end: 20120523

REACTIONS (7)
  - VOMITING [None]
  - PAIN [None]
  - DIZZINESS [None]
  - CEREBROVASCULAR ACCIDENT [None]
  - VOMITING PROJECTILE [None]
  - HEADACHE [None]
  - CONVULSION [None]
